FAERS Safety Report 8294410-2 (Version None)
Quarter: 2012Q2

REPORT INFORMATION
  Report Type: 
  Country: None (occurrence: None)
  Receive Date: 20120418
  Receipt Date: 20120410
  Transmission Date: 20120825
  Serious: Yes (Death)
  Sender: FDA-Public Use
  Company Number: US-CELGENEUS-163-21880-12033539

PATIENT
  Sex: Female
  Weight: 72.186 kg

DRUGS (8)
  1. CALCIUM 600 + D [Concomitant]
     Route: 065
  2. REVLIMID [Suspect]
     Indication: LYMPHOMA
     Dosage: 10 MILLIGRAM
     Route: 048
     Dates: start: 20100101, end: 20120305
  3. VITAMIN B-12 [Concomitant]
     Route: 065
  4. CRESTOR [Concomitant]
     Dosage: 20 MILLIGRAM
     Route: 065
  5. SEROQUEL [Concomitant]
     Dosage: 100 MILLIGRAM
     Route: 065
  6. KLONOPIN [Concomitant]
     Dosage: 1 MILLIGRAM
     Route: 065
  7. ZOLOFT [Concomitant]
     Dosage: 100 MILLIGRAM
     Route: 065
  8. ASPIRIN [Concomitant]
     Dosage: 81 MILLIGRAM
     Route: 065

REACTIONS (1)
  - NON-HODGKIN'S LYMPHOMA [None]
